FAERS Safety Report 18690343 (Version 2)
Quarter: 2021Q1

REPORT INFORMATION
  Report Type: Spontaneous
  Country: MA (occurrence: MA)
  Receive Date: 20210101
  Receipt Date: 20210112
  Transmission Date: 20210419
  Serious: Yes (Hospitalization, Other)
  Sender: FDA-Public Use
  Company Number: MA-LUPIN PHARMACEUTICALS INC.-2020-11162

PATIENT
  Age: 73 Year
  Sex: Male

DRUGS (7)
  1. ATORVASTATIN [Concomitant]
     Active Substance: ATORVASTATIN
     Indication: INFARCTION
     Dosage: 80 MILLIGRAM
     Route: 065
  2. AZITHROMYCIN ANHYDROUS. [Suspect]
     Active Substance: AZITHROMYCIN ANHYDROUS
     Indication: COVID-19
     Dosage: 500 MILLIGRAM, QD
     Route: 065
  3. PERINDOPRIL [Concomitant]
     Active Substance: PERINDOPRIL
     Indication: HYPERTENSION
     Dosage: UNK
     Route: 065
  4. ASPIRIN [ACETYLSALICYLIC ACID] [Concomitant]
     Active Substance: ASPIRIN
     Indication: INFARCTION
     Dosage: 1 DOSAGE FORM, QD
     Route: 065
  5. HYDROXYCHLOROQUINE [Suspect]
     Active Substance: HYDROXYCHLOROQUINE
     Indication: COVID-19
     Dosage: 200 MILLIGRAM, TID
     Route: 065
  6. METFORMIN [Concomitant]
     Active Substance: METFORMIN HYDROCHLORIDE
     Indication: TYPE 2 DIABETES MELLITUS
     Dosage: UNK
     Route: 065
  7. CLOPIDOGREL [Concomitant]
     Active Substance: CLOPIDOGREL BISULFATE
     Indication: INFARCTION
     Dosage: 1 DOSAGE FORM, QD
     Route: 065

REACTIONS (6)
  - Conduction disorder [Recovering/Resolving]
  - Ventricular extrasystoles [Recovering/Resolving]
  - Atrial fibrillation [Unknown]
  - Atrial tachycardia [Recovering/Resolving]
  - Electrocardiogram QT prolonged [Recovered/Resolved]
  - Off label use [Unknown]
